FAERS Safety Report 5136331-X (Version None)
Quarter: 2006Q4

REPORT INFORMATION
  Report Type: 
  Country: None (occurrence: None)
  Receive Date: 20061027
  Receipt Date: 20061018
  Transmission Date: 20070319
  Serious: Yes (Hospitalization)
  Sender: FDA-Public Use
  Company Number: GB-NOVOPROD-257867

PATIENT
  Sex: Male

DRUGS (1)
  1. HUMAN MIXTARD 30 HM(GE) [Suspect]
     Dates: start: 19950101

REACTIONS (2)
  - HYPERGLYCAEMIA [None]
  - STOMACH DISCOMFORT [None]
